APPROVED DRUG PRODUCT: METOPROLOL SUCCINATE
Active Ingredient: METOPROLOL SUCCINATE
Strength: EQ 200MG TARTRATE
Dosage Form/Route: TABLET, EXTENDED RELEASE;ORAL
Application: A205541 | Product #004 | TE Code: AB
Applicant: HETERO LABS LTD UNIT III
Approved: Nov 6, 2020 | RLD: No | RS: No | Type: RX